FAERS Safety Report 9818488 (Version 1)
Quarter: 2014Q1

REPORT INFORMATION
  Report Type: Spontaneous
  Country: US (occurrence: US)
  Receive Date: 20140115
  Receipt Date: 20140115
  Transmission Date: 20141002
  Serious: No
  Sender: FDA-Public Use
  Company Number: US-PFIZER INC-2014012581

PATIENT
  Age: 46 Year
  Sex: Female
  Weight: 79.82 kg

DRUGS (1)
  1. LYRICA [Suspect]
     Indication: CONUS MEDULLARIS SYNDROME
     Dosage: 75 MG, 2X/DAY
     Dates: start: 201401

REACTIONS (1)
  - Weight increased [Unknown]
